FAERS Safety Report 14816716 (Version 2)
Quarter: 2018Q2

REPORT INFORMATION
  Report Type: Report from Study
  Country: CA (occurrence: CA)
  Receive Date: 20180426
  Receipt Date: 20180605
  Transmission Date: 20180711
  Serious: Yes (Hospitalization)
  Sender: FDA-Public Use
  Company Number: CA-ACTELION-A-NJ2018-171154

PATIENT
  Age: 54 Year
  Sex: Male

DRUGS (9)
  1. LORAZEPAM. [Concomitant]
     Active Substance: LORAZEPAM
     Dosage: UNK, QD
  2. PANTOPRAZOLE [Concomitant]
     Active Substance: PANTOPRAZOLE
  3. NORVASTATIN [Concomitant]
     Dosage: UNK, QD
  4. TYLENOL [Concomitant]
     Active Substance: ACETAMINOPHEN
     Dosage: 1000 MG, Q4HRS
  5. FUROSEMIDE. [Concomitant]
     Active Substance: FUROSEMIDE
  6. UPTRAVI [Suspect]
     Active Substance: SELEXIPAG
     Indication: PULMONARY ARTERIAL HYPERTENSION
     Dosage: 1600 MCG, BID
     Route: 048
     Dates: start: 20170731, end: 201805
  7. ADCIRCA [Concomitant]
     Active Substance: TADALAFIL
  8. ASA [Concomitant]
     Active Substance: ASPIRIN
     Dosage: 80 MG, QD
  9. OXYGEN. [Concomitant]
     Active Substance: OXYGEN
     Dosage: 6 L/MIN, UNK

REACTIONS (2)
  - Cardiac failure [Not Recovered/Not Resolved]
  - Lung transplant [Not Recovered/Not Resolved]

NARRATIVE: CASE EVENT DATE: 20180414
